FAERS Safety Report 9458784 (Version 1)
Quarter: 2013Q3

REPORT INFORMATION
  Report Type: Spontaneous
  Country: FR (occurrence: FR)
  Receive Date: 20130814
  Receipt Date: 20130814
  Transmission Date: 20140515
  Serious: Yes (Hospitalization)
  Sender: FDA-Public Use
  Company Number: FR-BRISTOL-MYERS SQUIBB COMPANY-19168764

PATIENT
  Age: 61 Year
  Sex: Male

DRUGS (12)
  1. YERVOY [Suspect]
     Indication: METASTATIC MALIGNANT MELANOMA
     Dosage: THREE SUCCESSIVE INJECTIONS OF YERVOY ON 02-MAY-2013, 22-MAY-2013 THEN 13-JUN-2013
     Route: 042
     Dates: start: 20130613
  2. LOVENOX [Concomitant]
     Dosage: ANTI-XA/0.4ML SOLUTION FOR INJ IN CARTRIDGE (ENOXAPARIN SODIUM) 1 INJ
     Route: 058
     Dates: start: 20130608, end: 20130627
  3. SPECIAFOLDINE [Concomitant]
     Route: 048
     Dates: start: 20130608
  4. KARDEGIC [Concomitant]
     Dosage: KARDEGIC 75 MG POWDER FOR ORAL SOLUTION
     Route: 048
  5. STILNOX [Concomitant]
     Indication: INSOMNIA
     Dosage: SCORED FILM-COATED TABLET
     Route: 048
  6. CORTANCYL [Concomitant]
     Route: 048
  7. INEXIUM [Concomitant]
     Dosage: GASTRO-RESISTANT TABLET
     Route: 048
  8. ABSTRAL [Concomitant]
     Indication: PAIN
     Route: 060
     Dates: start: 20130608
  9. PARACETAMOL [Concomitant]
     Indication: PAIN
     Route: 048
  10. COVERSYL [Concomitant]
     Dosage: SCORED FILM-COATED TABLET
     Route: 048
  11. DIFFU-K [Concomitant]
     Dosage: 1 DF=1 TAB
  12. LYRICA [Concomitant]
     Indication: PAIN
     Dosage: CAPS
     Dates: start: 20130608

REACTIONS (2)
  - Histiocytosis haematophagic [Recovering/Resolving]
  - General physical health deterioration [Recovering/Resolving]
